FAERS Safety Report 17828296 (Version 4)
Quarter: 2025Q1

REPORT INFORMATION
  Report Type: Spontaneous
  Country: US (occurrence: US)
  Receive Date: 20200527
  Receipt Date: 20250120
  Transmission Date: 20250409
  Serious: No
  Sender: TAKEDA
  Company Number: US-SHIRE-US202017139

PATIENT
  Sex: Female
  Weight: 28 kg

DRUGS (4)
  1. LIALDA [Suspect]
     Active Substance: MESALAMINE
     Indication: Colitis ulcerative
     Dosage: 1.2 GRAM, QID
  2. LIALDA [Suspect]
     Active Substance: MESALAMINE
     Dosage: 1.2 MILLIGRAM, QD
  3. MESALAMINE [Suspect]
     Active Substance: MESALAMINE
     Indication: Colitis ulcerative
  4. RABEPRAZOLE [Concomitant]
     Active Substance: RABEPRAZOLE
     Indication: Gastrooesophageal reflux disease

REACTIONS (11)
  - Gastrointestinal disorder [Unknown]
  - Mucous stools [Unknown]
  - Anal incontinence [Unknown]
  - Illness [Unknown]
  - Frustration tolerance decreased [Unknown]
  - Malaise [Unknown]
  - Product dispensing error [Unknown]
  - Insurance issue [Unknown]
  - Anorectal discomfort [Unknown]
  - Diarrhoea [Unknown]
  - Flatulence [Unknown]
